FAERS Safety Report 7767945-6 (Version None)
Quarter: 2011Q3

REPORT INFORMATION
  Report Type: 
  Country: None (occurrence: None)
  Receive Date: 20110922
  Receipt Date: 20100303
  Transmission Date: 20111222
  Serious: Yes (Other)
  Sender: FDA-Public Use
  Company Number: US-ASTRAZENECA-2009SE14788

PATIENT
  Sex: Male

DRUGS (11)
  1. TRAZODONE HCL [Concomitant]
     Route: 048
     Dates: start: 20010511
  2. TRIAMTERENE AND HYDROCHLOROTHIAZIDE [Concomitant]
     Indication: BLOOD PRESSURE ABNORMAL
     Dosage: 50 MG / 75 MG TAKE ONE TABLET EVERY MORNING
     Route: 048
     Dates: start: 20060815
  3. PREDNISONE [Concomitant]
     Dosage: 5 TO 20 MG
     Route: 048
     Dates: start: 20010331
  4. DIPHENHYDRAMINE HCL [Concomitant]
     Indication: SLEEP DISORDER
     Dosage: 2C PO QHS ETOH, 1 CAPSULE AT BED TIME MAY TAKE 2 CAPSULES IF NEEDED
     Route: 048
     Dates: start: 20010316
  5. ATENOLOL [Concomitant]
     Indication: CARDIAC DISORDER
     Route: 048
     Dates: start: 20060815
  6. RISPERIDONE [Concomitant]
     Route: 048
     Dates: start: 20010511
  7. SEROQUEL [Suspect]
     Dosage: 25 TO 200 MG
     Route: 048
     Dates: start: 20010413
  8. ATENOLOL [Concomitant]
     Indication: BLOOD PRESSURE ABNORMAL
     Route: 048
     Dates: start: 20060815
  9. CLONAZEPAM [Concomitant]
     Indication: ANXIETY
     Route: 048
     Dates: start: 20060815
  10. ULTRAM [Concomitant]
     Indication: PAIN
     Dosage: TAKE TWO TABLETS BY MOUTH THREE TIMES A DAY AS NEEDED
     Route: 048
     Dates: start: 20060101
  11. FELODIPINE [Concomitant]
     Indication: BLOOD PRESSURE ABNORMAL
     Route: 048
     Dates: start: 20060815

REACTIONS (3)
  - ERECTILE DYSFUNCTION [None]
  - DIABETES MELLITUS [None]
  - HYPERGLYCAEMIA [None]
